FAERS Safety Report 19509152 (Version 1)
Quarter: 2021Q3

REPORT INFORMATION
  Report Type: Other
  Country: CA (occurrence: CA)
  Receive Date: 20210709
  Receipt Date: 20210709
  Transmission Date: 20211014
  Serious: Yes (Hospitalization, Other)
  Sender: FDA-Public Use
  Company Number: CA-APOTEX-2021AP015315

PATIENT
  Age: 5 Year
  Sex: Male

DRUGS (3)
  1. NORMAL SALINE [Concomitant]
     Active Substance: SODIUM CHLORIDE
     Indication: SOMATOTROPIN STIMULATION TEST
     Dosage: UNK
     Route: 041
  2. CLONIDINE. [Suspect]
     Active Substance: CLONIDINE
     Indication: SOMATOTROPIN STIMULATION TEST
     Dosage: 100 MICROGRAM/SQ. METER
     Route: 048
  3. ARGININE [Suspect]
     Active Substance: ARGININE
     Indication: SOMATOTROPIN STIMULATION TEST
     Dosage: UNK
     Route: 041

REACTIONS (5)
  - Haematuria [Recovered/Resolved]
  - Hypotension [Recovered/Resolved]
  - Weight bearing difficulty [Recovered/Resolved]
  - Myalgia [Recovered/Resolved]
  - Gait disturbance [Recovered/Resolved]
